FAERS Safety Report 16913226 (Version 2)
Quarter: 2019Q4

REPORT INFORMATION
  Report Type: Spontaneous
  Country: US (occurrence: US)
  Receive Date: 20191014
  Receipt Date: 20191018
  Transmission Date: 20200122
  Serious: Yes (Hospitalization, Disabling, Other)
  Sender: FDA-Public Use
  Company Number: US-ASTRAZENECA-2019SF44951

PATIENT
  Age: 72 Year
  Sex: Female

DRUGS (4)
  1. TAGRISSO [Suspect]
     Active Substance: OSIMERTINIB
     Indication: CEREBRAL DISORDER
     Route: 048
     Dates: start: 20190502
  2. TAGRISSO [Suspect]
     Active Substance: OSIMERTINIB
     Indication: MEDIASTINAL DISORDER
     Route: 048
     Dates: start: 20190502
  3. TAGRISSO [Suspect]
     Active Substance: OSIMERTINIB
     Indication: NON-SMALL CELL LUNG CANCER
     Route: 048
     Dates: start: 20190502
  4. TAGRISSO [Suspect]
     Active Substance: OSIMERTINIB
     Indication: EGFR GENE MUTATION
     Route: 048
     Dates: start: 20190502

REACTIONS (2)
  - Myelitis [Unknown]
  - Paralysis [Unknown]
